FAERS Safety Report 7044998-4 (Version None)
Quarter: 2010Q4

REPORT INFORMATION
  Report Type: 
  Country: None (occurrence: None)
  Receive Date: 20101014
  Receipt Date: 20101007
  Transmission Date: 20110411
  Serious: Yes (Other)
  Sender: FDA-Public Use
  Company Number: US-JNJCH-2010023056

PATIENT
  Age: 48 Year
  Sex: Female
  Weight: 81.6 kg

DRUGS (4)
  1. LISTERINE ANTISEPTIC MOUTHWASH [Suspect]
     Indication: PRODUCT USED FOR UNKNOWN INDICATION
     Dosage: TEXT:A CAPFUL TWO OR THREE TIMES PER DAY
     Route: 048
  2. ALPRAZOLAM [Concomitant]
     Indication: ANXIETY
     Dosage: TEXT:10 MG 1X DAY
     Route: 065
  3. MORPHINE [Concomitant]
     Indication: PAIN
     Dosage: TEXT:30 MG 1X A DAY
     Route: 065
  4. ADDERALL 10 [Concomitant]
     Indication: ATTENTION DEFICIT/HYPERACTIVITY DISORDER
     Dosage: TEXT:20 MG 1X A DAY
     Route: 065

REACTIONS (5)
  - CANDIDIASIS [None]
  - GINGIVAL BLISTER [None]
  - PRODUCT QUALITY ISSUE [None]
  - SALIVA ALTERED [None]
  - TONGUE HAEMORRHAGE [None]
